FAERS Safety Report 19470343 (Version 2)
Quarter: 2021Q3

REPORT INFORMATION
  Report Type: Spontaneous
  Country: US (occurrence: US)
  Receive Date: 20210628
  Receipt Date: 20210715
  Transmission Date: 20211014
  Serious: Yes (Other)
  Sender: FDA-Public Use
  Company Number: US-COOPERSURGICAL, INC.-US-2021CPS001736

PATIENT
  Age: 29 Year
  Sex: Female
  Weight: 111.11 kg

DRUGS (1)
  1. PARAGARD T 380A [Suspect]
     Active Substance: COPPER
     Indication: CONTRACEPTION
     Dosage: UNK
     Route: 015
     Dates: start: 20191015, end: 20210609

REACTIONS (4)
  - Ectopic pregnancy with contraceptive device [Recovered/Resolved]
  - Drug ineffective [Unknown]
  - Ovarian cyst [Recovered/Resolved]
  - Abnormal uterine bleeding [Unknown]

NARRATIVE: CASE EVENT DATE: 2020
